FAERS Safety Report 4992306-2 (Version None)
Quarter: 2006Q2

REPORT INFORMATION
  Report Type: 
  Country: None (occurrence: None)
  Receive Date: 20060502
  Receipt Date: 20060419
  Transmission Date: 20061013
  Serious: No
  Sender: FDA-Public Use
  Company Number: TPA2006A00692

PATIENT
  Age: 60 Year
  Sex: Female
  Weight: 77.1115 kg

DRUGS (6)
  1. ROZEREM [Suspect]
     Indication: MIDDLE INSOMNIA
     Dosage: SEE IMAGE
     Route: 048
     Dates: start: 20060416, end: 20060417
  2. ROZEREM [Suspect]
     Indication: MIDDLE INSOMNIA
     Dosage: SEE IMAGE
     Route: 048
     Dates: start: 20060417
  3. SERZONE [Concomitant]
  4. LISINOPRIL [Concomitant]
  5. PRAVACHOL [Concomitant]
  6. FOSAMAX [Concomitant]

REACTIONS (5)
  - FEELING ABNORMAL [None]
  - HANGOVER [None]
  - INCORRECT DOSE ADMINISTERED [None]
  - INITIAL INSOMNIA [None]
  - MIDDLE INSOMNIA [None]
